FAERS Safety Report 7639409-1 (Version None)
Quarter: 2011Q3

REPORT INFORMATION
  Report Type: 
  Country: None (occurrence: None)
  Receive Date: 20110727
  Receipt Date: 20110708
  Transmission Date: 20111222
  Serious: Yes (Hospitalization)
  Sender: FDA-Public Use
  Company Number: US-GLAXOSMITHKLINE-A0731836A

PATIENT
  Age: 60 Year
  Sex: Female

DRUGS (5)
  1. PLAVIX [Concomitant]
  2. GLUCOPHAGE [Concomitant]
  3. UNIVASC [Concomitant]
  4. AVANDIA [Suspect]
     Indication: TYPE 2 DIABETES MELLITUS
     Dosage: 4MG PER DAY
     Route: 048
     Dates: start: 20040301, end: 20061229
  5. LIPITOR [Concomitant]

REACTIONS (1)
  - ISCHAEMIC STROKE [None]
